FAERS Safety Report 20260948 (Version 1)
Quarter: 2021Q4

REPORT INFORMATION
  Report Type: Spontaneous
  Country: US (occurrence: US)
  Receive Date: 20211230
  Receipt Date: 20211230
  Transmission Date: 20220304
  Serious: No
  Sender: FDA-Public Use
  Company Number: US-drreddys-SPO/USA/21/0145341

PATIENT
  Age: 31 Year
  Sex: Male

DRUGS (4)
  1. ZENATANE [Suspect]
     Active Substance: ISOTRETINOIN
     Indication: Product used for unknown indication
     Dosage: RMA ISSUE DATE: 30 SEPTEMBER 2021 03:56:30 PM, 15 JULY 2021 09:11:08 AM
  2. ZENATANE [Suspect]
     Active Substance: ISOTRETINOIN
     Dosage: RMA ISSUE DATE:08 JUNE 2021 03:20:10 PM, 08 NOVEMBER 2016 02:31:44 PM
  3. ZENATANE [Suspect]
     Active Substance: ISOTRETINOIN
     Dosage: RMA ISSUE DATE: 22 JANUARY 2017 12:26:14 PM, 13 DECEMBER 2016 09:23:26 PM
  4. ZENATANE [Suspect]
     Active Substance: ISOTRETINOIN
     Dosage: RMA ISSUE DATE: 11 OCTOBER 2016 10:16:21 AM

REACTIONS (1)
  - Treatment noncompliance [Unknown]
